FAERS Safety Report 6377225-1 (Version None)
Quarter: 2009Q3

REPORT INFORMATION
  Report Type: 
  Country: None (occurrence: None)
  Receive Date: 20090925
  Receipt Date: 20090916
  Transmission Date: 20100115
  Serious: Yes (Other)
  Sender: FDA-Public Use
  Company Number: A0808742A

PATIENT
  Sex: Male
  Weight: 95.5 kg

DRUGS (9)
  1. REQUIP [Suspect]
     Indication: PARKINSON'S DISEASE
     Dosage: 6MG FOUR TIMES PER DAY
     Route: 048
     Dates: start: 20010101
  2. CARBIDOPA-LEVODOPA [Concomitant]
  3. AMANTADINE HCL [Concomitant]
  4. LIPITOR [Concomitant]
  5. TRIAMTERENE AND HYDROCHLOROTHIAZIDE [Concomitant]
  6. FUROSEMIDE [Concomitant]
  7. POTASSIUM CHLORIDE [Concomitant]
  8. ELDEPRYL [Concomitant]
  9. PRAMIPEXOLE [Concomitant]
     Dates: end: 20070101

REACTIONS (4)
  - DOPAMINE DYSREGULATION SYNDROME [None]
  - EATING DISORDER [None]
  - HALLUCINATION [None]
  - PATHOLOGICAL GAMBLING [None]
